FAERS Safety Report 7865805-3 (Version None)
Quarter: 2011Q4

REPORT INFORMATION
  Report Type: 
  Country: None (occurrence: None)
  Receive Date: 20111028
  Receipt Date: 20110228
  Transmission Date: 20120403
  Serious: No
  Sender: FDA-Public Use
  Company Number: US-GLAXOSMITHKLINE-A0915865A

PATIENT
  Age: 83 Year
  Sex: Male

DRUGS (11)
  1. XYZAL [Concomitant]
  2. ASPIRIN [Concomitant]
  3. VENTOLIN [Suspect]
     Indication: PRODUCT USED FOR UNKNOWN INDICATION
     Route: 055
  4. LOTREL [Concomitant]
  5. WELLBUTRIN [Concomitant]
  6. ADVAIR DISKUS 100/50 [Suspect]
     Indication: CHRONIC OBSTRUCTIVE PULMONARY DISEASE
     Dosage: 1PUFF TWICE PER DAY
  7. ZEBETA [Concomitant]
  8. LIPITOR [Concomitant]
  9. FLOMAX [Concomitant]
  10. MAXZIDE [Concomitant]
  11. SPIRIVA [Concomitant]

REACTIONS (1)
  - DRY MOUTH [None]
